FAERS Safety Report 4455861-7 (Version None)
Quarter: 2004Q3

REPORT INFORMATION
  Report Type: 
  Country: None (occurrence: None)
  Receive Date: 20040920
  Receipt Date: 20040908
  Transmission Date: 20050211
  Serious: Yes (Hospitalization, Other)
  Sender: FDA-Public Use
  Company Number: USA-2003-0005403

PATIENT
  Age: 40 Year
  Sex: Male
  Weight: 77.1 kg

DRUGS (6)
  1. OXYCONTIN [Suspect]
     Indication: PAIN
     Dosage: 20 MG, BID, ORAL
     Route: 048
     Dates: start: 19990715, end: 20000328
  2. ETHANOL(ETHANOL) [Suspect]
     Dosage: ORAL
     Route: 048
  3. TIMOPTIC [Concomitant]
  4. DIAMOX [Concomitant]
  5. ALBUTEROL [Concomitant]
  6. SEREVENT [Concomitant]

REACTIONS (28)
  - ACCIDENT [None]
  - ALCOHOLISM [None]
  - ARTHRALGIA [None]
  - COMA [None]
  - CYANOSIS [None]
  - DEPENDENCE [None]
  - DEPRESSION [None]
  - DIARRHOEA [None]
  - DRUG ABUSER [None]
  - DRUG WITHDRAWAL SYNDROME [None]
  - DYSPNOEA [None]
  - EMOTIONAL DISTRESS [None]
  - HEADACHE [None]
  - HYPERHIDROSIS [None]
  - INSOMNIA [None]
  - IRRITABILITY [None]
  - LETHARGY [None]
  - MULTIPLE DRUG OVERDOSE [None]
  - MUSCLE TIGHTNESS [None]
  - NAUSEA [None]
  - NERVOUSNESS [None]
  - PAIN IN EXTREMITY [None]
  - RESPIRATORY ARREST [None]
  - RESPIRATORY FAILURE [None]
  - THERAPEUTIC AGENT TOXICITY [None]
  - TREMOR [None]
  - VOMITING [None]
  - WEIGHT DECREASED [None]
